FAERS Safety Report 7762618-8 (Version None)
Quarter: 2011Q3

REPORT INFORMATION
  Report Type: 
  Country: None (occurrence: None)
  Receive Date: 20110920
  Receipt Date: 20110914
  Transmission Date: 20111222
  Serious: Yes (Disabling)
  Sender: FDA-Public Use
  Company Number: GB-GLAXOSMITHKLINE-B0728004A

PATIENT
  Age: 67 Year
  Sex: Female
  Weight: 52 kg

DRUGS (1)
  1. PAROXETINE HCL [Suspect]
     Indication: ANXIETY
     Route: 048
     Dates: start: 19950101, end: 20110101

REACTIONS (4)
  - WITHDRAWAL SYNDROME [None]
  - ALCOHOLISM [None]
  - DRUG ABUSE [None]
  - ALCOHOL ABUSE [None]
